FAERS Safety Report 16830495 (Version 2)
Quarter: 2022Q1

REPORT INFORMATION
  Report Type: Spontaneous
  Country: US (occurrence: US)
  Receive Date: 20190920
  Receipt Date: 20220308
  Transmission Date: 20220423
  Serious: Yes (Other)
  Sender: FDA-Public Use
  Company Number: US-TAKEDA-2019TUS053132

PATIENT
  Age: 66 Year
  Sex: Male
  Weight: 88.4 kg

DRUGS (1)
  1. NINLARO [Suspect]
     Active Substance: IXAZOMIB CITRATE
     Indication: Plasma cell myeloma
     Dosage: 4 MILLIGRAM
     Route: 048
     Dates: start: 2017, end: 20220304

REACTIONS (5)
  - Plasma cell myeloma recurrent [Unknown]
  - Atrial fibrillation [Unknown]
  - Neuropathy peripheral [Unknown]
  - Laboratory test abnormal [Unknown]
  - Cognitive disorder [Unknown]

NARRATIVE: CASE EVENT DATE: 20220304
